FAERS Safety Report 24681064 (Version 6)
Quarter: 2025Q1

REPORT INFORMATION
  Report Type: Spontaneous
  Country: US (occurrence: US)
  Receive Date: 20241129
  Receipt Date: 20250207
  Transmission Date: 20250408
  Serious: Yes (Hospitalization, Other)
  Sender: SANOFI AVENTIS
  Company Number: US-SA-2024SA269579

PATIENT
  Age: 60 Year
  Sex: Male
  Weight: 75 kg

DRUGS (55)
  1. DUPIXENT [Suspect]
     Active Substance: DUPILUMAB
     Indication: Asthma
     Dosage: 300 MG, QOW
     Route: 058
     Dates: start: 202404, end: 2024
  2. DUPIXENT [Suspect]
     Active Substance: DUPILUMAB
     Dosage: 300 MG, QOW
     Route: 058
     Dates: start: 2024, end: 20240905
  3. DUPIXENT [Suspect]
     Active Substance: DUPILUMAB
     Dosage: 300 MG, QOW, START DATE: 07-SEP-2024
     Route: 058
  4. ANASTROZOLE [Concomitant]
     Active Substance: ANASTROZOLE
  5. AZELASTINE [Concomitant]
     Active Substance: AZELASTINE
  6. DERMAZINC [Concomitant]
     Active Substance: PYRITHIONE ZINC
  7. DEXILANT [Concomitant]
     Active Substance: DEXLANSOPRAZOLE
  8. DOCUSATE SODIUM [Concomitant]
     Active Substance: DOCUSATE SODIUM
  9. FAMOTIDINE [Concomitant]
     Active Substance: FAMOTIDINE
  10. HYDROCORTISONE [Concomitant]
     Active Substance: HYDROCORTISONE
  11. IBUPROFEN [Concomitant]
     Active Substance: IBUPROFEN
  12. MONTELUKAST [Concomitant]
     Active Substance: MONTELUKAST
  13. PHENTERMINE [Concomitant]
     Active Substance: PHENTERMINE
     Dosage: 30 MG, QD
  14. QUVIVIQ [Concomitant]
     Active Substance: DARIDOREXANT
  15. SILODOSIN [Concomitant]
     Active Substance: SILODOSIN
  16. TADALAFIL [Concomitant]
     Active Substance: TADALAFIL
  17. TESTOSTERONE CYPIONATE [Concomitant]
     Active Substance: TESTOSTERONE CYPIONATE
  18. TRELEGY ELLIPTA [Concomitant]
     Active Substance: FLUTICASONE FUROATE\UMECLIDINIUM BROMIDE\VILANTEROL TRIFENATATE
  19. ZEPBOUND [Concomitant]
     Active Substance: TIRZEPATIDE
  20. PANTOPRAZOLE [Concomitant]
     Active Substance: PANTOPRAZOLE
     Indication: Gastrooesophageal reflux disease
  21. NYSTATIN [Concomitant]
     Active Substance: NYSTATIN
  22. PEPCID [Concomitant]
     Active Substance: FAMOTIDINE
     Indication: Gastrooesophageal reflux disease
  23. VITAMIN B12 [Concomitant]
     Active Substance: CYANOCOBALAMIN
  24. ALBUTEROL SULFATE [Concomitant]
     Active Substance: ALBUTEROL SULFATE
  25. KETOCONAZOLE [Concomitant]
     Active Substance: KETOCONAZOLE
  26. CALCIPOTRIENE [Concomitant]
     Active Substance: CALCIPOTRIENE
  27. Fish Oil OMEGA 3s [Concomitant]
  28. MELOXICAM [Concomitant]
     Active Substance: MELOXICAM
  29. ANASTROZOLE [Concomitant]
     Active Substance: ANASTROZOLE
  30. TYLENOL EXTRA STRENGTH [Concomitant]
     Active Substance: ACETAMINOPHEN
  31. CLOBETASOL [Concomitant]
     Active Substance: CLOBETASOL
  32. COQMAX UBIQUINOL [Concomitant]
  33. ZEPBOUND [Concomitant]
     Active Substance: TIRZEPATIDE
     Dosage: UNK, QW
  34. IBUPROFEN [Concomitant]
     Active Substance: IBUPROFEN
  35. NYSTATIN [Concomitant]
     Active Substance: NYSTATIN
  36. MONTELUKAST SODIUM [Concomitant]
     Active Substance: MONTELUKAST SODIUM
  37. MINOXIDIL [Concomitant]
     Active Substance: MINOXIDIL
  38. VITAMIN D3 [Concomitant]
     Active Substance: CHOLECALCIFEROL
  39. TADALAFIL [Concomitant]
     Active Substance: TADALAFIL
  40. MIRALAX [Concomitant]
     Active Substance: POLYETHYLENE GLYCOL 3350
  41. ALBUTEROL SULFATE [Concomitant]
     Active Substance: ALBUTEROL SULFATE
  42. PROPYLTHIOURACIL [Concomitant]
     Active Substance: PROPYLTHIOURACIL
  43. AZELASTINE HYDROCHLORIDE [Concomitant]
     Active Substance: AZELASTINE HYDROCHLORIDE
  44. DERMAZINC [Concomitant]
     Active Substance: PYRITHIONE ZINC
  45. FLONASE ALLERGY RELIEF [Concomitant]
     Active Substance: FLUTICASONE PROPIONATE
  46. TRAZODONE HCL [Concomitant]
     Active Substance: TRAZODONE HYDROCHLORIDE
  47. FLUOCINOLONE ACETONIDE [Concomitant]
     Active Substance: FLUOCINOLONE ACETONIDE
  48. MINERALS\VITAMINS [Concomitant]
     Active Substance: MINERALS\VITAMINS
  49. COLACE [Concomitant]
     Active Substance: DOCUSATE SODIUM
  50. PRASTERONE [Concomitant]
     Active Substance: PRASTERONE
  51. PRAVASTATIN SODIUM [Concomitant]
     Active Substance: PRAVASTATIN SODIUM
  52. FINASTERIDE [Concomitant]
     Active Substance: FINASTERIDE
  53. BUDESONIDE [Concomitant]
     Active Substance: BUDESONIDE
  54. DOCUSATE SODIUM [Concomitant]
     Active Substance: DOCUSATE SODIUM
  55. PRAVASTATIN [Concomitant]
     Active Substance: PRAVASTATIN

REACTIONS (25)
  - Spinal cord injury thoracic [Unknown]
  - Surgery [Unknown]
  - Gastrooesophageal reflux disease [Unknown]
  - Nasal turbinate hypertrophy [Unknown]
  - Obstructive sleep apnoea syndrome [Unknown]
  - Rhinitis allergic [Unknown]
  - Eczema [Unknown]
  - Hypoaesthesia [Unknown]
  - Paraesthesia [Unknown]
  - Overgrowth fungal [Unknown]
  - Reflux laryngitis [Unknown]
  - Nasal septum deviation [Unknown]
  - Otitis externa [Unknown]
  - Eczema [Unknown]
  - Excessive granulation tissue [Unknown]
  - Laryngeal erythema [Unknown]
  - Cough [Unknown]
  - Skin swelling [Recovering/Resolving]
  - Skin discolouration [Recovering/Resolving]
  - Dysphonia [Unknown]
  - Condition aggravated [Unknown]
  - Viral infection [Unknown]
  - Nasal congestion [Unknown]
  - Injection site bruising [Not Recovered/Not Resolved]
  - Elbow operation [Unknown]

NARRATIVE: CASE EVENT DATE: 20240101
